FAERS Safety Report 5522209-6 (Version None)
Quarter: 2007Q4

REPORT INFORMATION
  Report Type: 
  Country: None (occurrence: None)
  Receive Date: 20071120
  Receipt Date: 20071120
  Transmission Date: 20080405
  Serious: Yes (Other)
  Sender: FDA-Public Use
  Company Number: B0496099A

PATIENT
  Age: 70 Year
  Sex: Female
  Weight: 80 kg

DRUGS (4)
  1. RANITIDINE HCL [Suspect]
     Indication: GASTRIC ULCER
     Dosage: 300MG PER DAY
     Route: 048
     Dates: start: 20071108, end: 20071110
  2. OMEPRAZOLE [Concomitant]
     Dosage: 20MG PER DAY
     Route: 048
     Dates: start: 19910101, end: 20071108
  3. LIPITOR [Concomitant]
     Dates: start: 20020101
  4. ASPIRIN [Concomitant]
     Dosage: 75MG PER DAY
     Route: 048
     Dates: start: 20020101

REACTIONS (3)
  - ARTHRALGIA [None]
  - HEADACHE [None]
  - SWELLING FACE [None]
